FAERS Safety Report 10246202 (Version 2)
Quarter: 2014Q3

REPORT INFORMATION
  Report Type: Spontaneous
  Country: US (occurrence: None)
  Receive Date: 20140617
  Receipt Date: 20140808
  Transmission Date: 20150326
  Serious: Yes (Other)
  Sender: FDA-Public Use
  Company Number: 2014COV00012

PATIENT
  Age: 80 Year
  Sex: Male

DRUGS (2)
  1. LANOXIN [Suspect]
     Active Substance: DIGOXIN
     Dates: start: 20040916
  2. CARVEDILOL. [Suspect]
     Active Substance: CARVEDILOL
     Dates: start: 20030825

REACTIONS (1)
  - Diabetes mellitus [None]
